FAERS Safety Report 9001183 (Version 2)
Quarter: 2013Q1

REPORT INFORMATION
  Report Type: Spontaneous
  Country: GB (occurrence: GB)
  Receive Date: 20130107
  Receipt Date: 20130125
  Transmission Date: 20140127
  Serious: Yes (Hospitalization)
  Sender: FDA-Public Use
  Company Number: PHHY2013GB001332

PATIENT
  Sex: Male

DRUGS (4)
  1. NEORAL [Suspect]
     Dosage: MATERNAL DOSE: 50G BID
     Route: 064
  2. CEFALEXIN [Suspect]
     Dosage: MATERNAL DOSE: 500MG TID
     Route: 064
  3. FERROUS SULFATE [Suspect]
     Route: 064
  4. ACETYLSALICYLIC ACID [Suspect]
     Dosage: MATERNAL DOSE: 75MG DAILY
     Route: 064

REACTIONS (3)
  - Neonatal respiratory distress syndrome [Recovered/Resolved]
  - Premature baby [Unknown]
  - Foetal exposure during pregnancy [Unknown]
